FAERS Safety Report 20160158 (Version 1)
Quarter: 2021Q4

REPORT INFORMATION
  Report Type: Spontaneous
  Country: US (occurrence: US)
  Receive Date: 20211208
  Receipt Date: 20211208
  Transmission Date: 20220303
  Serious: No
  Sender: FDA-Public Use
  Company Number: US-STRIDES ARCOLAB LIMITED-2021SP029832

PATIENT
  Age: 28 Year
  Sex: Female

DRUGS (9)
  1. IBUPROFEN [Suspect]
     Active Substance: IBUPROFEN
     Indication: Plasma cell mastitis
     Dosage: UNK
     Route: 065
  2. PREDNISOLONE [Suspect]
     Active Substance: PREDNISOLONE
     Indication: Plasma cell mastitis
     Dosage: 30 MILLIGRAM, PER DAY, PREDNISONE TAPER AT 30 MG/DAY, DECREASING BY 5 MG/DAY
     Route: 048
  3. PREDNISOLONE [Suspect]
     Active Substance: PREDNISOLONE
     Dosage: 20 MILLIGRAM, PER DAY
     Route: 048
  4. TRIAMCINOLONE [Suspect]
     Active Substance: TRIAMCINOLONE
     Indication: Plasma cell mastitis
     Dosage: TRIAMCINOLONE 40MG/1ML INJECTION MIXED WITH LIDOCAINE 2% 3ML WAS GIVEN INTO THE AFFECTED AREAS OF HE
     Route: 065
  5. TRIAMCINOLONE [Suspect]
     Active Substance: TRIAMCINOLONE
     Dosage: UNK, AN INJECTION OF TRIAMCINOLONE MIXED WITH LIDOCAINE WAS PERFORMED
     Route: 065
  6. LIDOCAINE [Suspect]
     Active Substance: LIDOCAINE
     Indication: Plasma cell mastitis
     Dosage: 3 MILLILITRE, TRIAMCINOLONE 40MG/1ML INJECTION MIXED WITH 2% LIDOCAINE 3ML WAS GIVEN INTO THE AFFECT
     Route: 065
  7. LIDOCAINE [Suspect]
     Active Substance: LIDOCAINE
     Dosage: UNK, AN INJECTION OF TRIAMCINOLONE MIXED WITH LIDOCAINE WAS PERFORMED
     Route: 065
  8. ACETAMINOPHEN [Suspect]
     Active Substance: ACETAMINOPHEN
     Indication: Plasma cell mastitis
     Dosage: UNK
     Route: 065
  9. BREWERS YEAST [Suspect]
     Active Substance: SACCHAROMYCES CEREVISIAE
     Indication: Nutritional supplementation
     Dosage: UNK
     Route: 065

REACTIONS (3)
  - Maternal exposure during breast feeding [Unknown]
  - Maternal exposure during pregnancy [Unknown]
  - Off label use [Unknown]
